FAERS Safety Report 6709284-8 (Version None)
Quarter: 2010Q2

REPORT INFORMATION
  Report Type: 
  Country: None (occurrence: None)
  Receive Date: 20100504
  Receipt Date: 20100428
  Transmission Date: 20101027
  Serious: Yes (Other)
  Sender: FDA-Public Use
  Company Number: US-PFIZER INC-2008154219

PATIENT
  Sex: Male
  Weight: 72 kg

DRUGS (12)
  1. BLINDED *NO SUBJECT DRUG [Suspect]
     Indication: HIV INFECTION
     Dosage: UNK
     Dates: start: 20060213, end: 20060508
  2. BLINDED *PLACEBO [Suspect]
     Indication: HIV INFECTION
     Dosage: UNK
     Dates: start: 20060213, end: 20060508
  3. BLINDED MARAVIROC [Suspect]
     Indication: HIV INFECTION
     Dosage: UNK
     Dates: start: 20060213, end: 20060508
  4. TRUVADA [Concomitant]
     Indication: HIV INFECTION
     Dosage: UNK
     Route: 048
     Dates: start: 20050912
  5. ETRAVIRINE [Concomitant]
     Indication: HIV INFECTION
     Dosage: 100 MG, 2X/DAY
     Route: 048
     Dates: start: 20080428
  6. RALTEGRAVIR [Concomitant]
     Indication: HIV INFECTION
     Dosage: 400 MG, 2X/DAY DAILY
     Route: 048
     Dates: start: 20080428
  7. ACYCLOVIR [Concomitant]
     Dosage: UNK
     Route: 048
     Dates: start: 20080605
  8. ALPRAZOLAM [Concomitant]
     Dosage: UNK
     Route: 048
     Dates: start: 20040403
  9. DAPSONE [Concomitant]
     Dosage: UNK
     Route: 048
     Dates: start: 20040308
  10. DICLOXACILLIN [Concomitant]
     Dosage: UNK
     Route: 048
     Dates: start: 20071126
  11. FLUOXETINE [Concomitant]
     Dosage: UNK
     Route: 048
     Dates: start: 20060926
  12. ZOLPIDEM [Concomitant]
     Dosage: UNK
     Route: 048
     Dates: start: 20070720

REACTIONS (2)
  - ANOGENITAL WARTS [None]
  - CARCINOMA IN SITU [None]
